FAERS Safety Report 21112274 (Version 2)
Quarter: 2022Q4

REPORT INFORMATION
  Report Type: Spontaneous
  Country: US (occurrence: US)
  Receive Date: 20220721
  Receipt Date: 20221025
  Transmission Date: 20230112
  Serious: Yes (Other)
  Sender: FDA-Public Use
  Company Number: US-PFIZER INC-PV202200026253

PATIENT
  Age: 43 Year
  Sex: Female
  Weight: 76.7 kg

DRUGS (2)
  1. IBRANCE [Suspect]
     Active Substance: PALBOCICLIB
     Indication: Breast cancer female
     Dosage: 125 MG, 1X/DAY
  2. IBRANCE [Suspect]
     Active Substance: PALBOCICLIB
     Dosage: 75 MG, CYCLIC (ONE TABLET EVERY DAY, 21 DAYS ON, 7 DAYS OFF)
     Dates: start: 20220718

REACTIONS (3)
  - Neuropathy peripheral [Unknown]
  - Stomatitis [Not Recovered/Not Resolved]
  - White blood cell count decreased [Recovered/Resolved]
